FAERS Safety Report 22124446 (Version 1)
Quarter: 2023Q1

REPORT INFORMATION
  Report Type: Spontaneous
  Country: AU (occurrence: AU)
  Receive Date: 20230322
  Receipt Date: 20230322
  Transmission Date: 20230417
  Serious: No
  Sender: FDA-Public Use
  Company Number: AU-PFIZER INC-202300105588

PATIENT
  Age: 8 Decade
  Sex: Female

DRUGS (1)
  1. PAXLOVID [Suspect]
     Active Substance: NIRMATRELVIR\RITONAVIR
     Indication: COVID-19 treatment
     Dosage: [PF-07321332 300 MG]/[RITONAVIR 100 MG]; 2X/DAY
     Dates: start: 20230308

REACTIONS (16)
  - Pollakiuria [Unknown]
  - Hypertension [Recovered/Resolved]
  - Nausea [Unknown]
  - Headache [Unknown]
  - Myalgia [Unknown]
  - Balance disorder [Unknown]
  - Insomnia [Unknown]
  - Pruritus [Recovered/Resolved]
  - Hypersensitivity [Unknown]
  - Frequent bowel movements [Unknown]
  - Dysgeusia [Recovered/Resolved]
  - Disturbance in attention [Unknown]
  - Thinking abnormal [Unknown]
  - Feeling abnormal [Unknown]
  - Fatigue [Unknown]
  - Product dose omission issue [Unknown]

NARRATIVE: CASE EVENT DATE: 20230310
